FAERS Safety Report 12534655 (Version 1)
Quarter: 2016Q3

REPORT INFORMATION
  Report Type: Report from Study
  Country: US (occurrence: US)
  Receive Date: 20160706
  Receipt Date: 20160706
  Transmission Date: 20161109
  Serious: Yes (Other)
  Sender: FDA-Public Use
  Company Number: US-009507513-2005-131018-NL

PATIENT
  Sex: Female

DRUGS (4)
  1. MENOTROPINS [Suspect]
     Active Substance: MENOTROPINS
     Dosage: CONTINUING: UNK
  2. HUMEGON [Suspect]
     Active Substance: MENOTROPINS
     Dosage: CONTINUING: UNK
  3. METRODIN [Suspect]
     Active Substance: UROFOLLITROPIN
     Dosage: CONTINUING: UNK
  4. CLOMIPHENE CITRATE. [Suspect]
     Active Substance: CLOMIPHENE CITRATE
     Dosage: CONTINUING: UNK

REACTIONS (1)
  - Invasive breast carcinoma [Unknown]
